FAERS Safety Report 16078289 (Version 1)
Quarter: 2019Q2

REPORT INFORMATION
  Report Type: Spontaneous
  Country: US (occurrence: US)
  Receive Date: 20190315
  Receipt Date: 20190315
  Transmission Date: 20190711
  Serious: Yes (Other)
  Sender: FDA-Public Use
  Company Number: None

PATIENT
  Age: 59 Year
  Sex: Female
  Weight: 60.75 kg

DRUGS (1)
  1. HYDROCHLOROTHIAZIDE. [Suspect]
     Active Substance: HYDROCHLOROTHIAZIDE
     Indication: BLOOD CALCIUM ABNORMAL

REACTIONS (5)
  - Respiratory rate increased [None]
  - Anxiety [None]
  - Heart rate increased [None]
  - Paraesthesia [None]
  - Irritability [None]

NARRATIVE: CASE EVENT DATE: 20170308
